FAERS Safety Report 6897735-8 (Version None)
Quarter: 2010Q3

REPORT INFORMATION
  Report Type: 
  Country: None (occurrence: None)
  Receive Date: 20100802
  Receipt Date: 20070716
  Transmission Date: 20110219
  Serious: Yes (Other)
  Sender: FDA-Public Use
  Company Number: US-PFIZER INC-2007041150

PATIENT
  Sex: Male
  Weight: 50 kg

DRUGS (6)
  1. LYRICA [Suspect]
     Indication: NEUROPATHY PERIPHERAL
     Route: 048
     Dates: start: 20070501
  2. CYMBALTA [Concomitant]
  3. TRAZODONE [Concomitant]
  4. WELLBUTRIN [Concomitant]
  5. OXYCONTIN [Concomitant]
  6. OXYCODONE [Concomitant]

REACTIONS (2)
  - AMNESIA [None]
  - SOMNOLENCE [None]
